FAERS Safety Report 4535855-3 (Version None)
Quarter: 2004Q4

REPORT INFORMATION
  Report Type: 
  Country: None (occurrence: None)
  Receive Date: 20041223
  Receipt Date: 20030430
  Transmission Date: 20050328
  Serious: No
  Sender: FDA-Public Use
  Company Number: US-GLAXOSMITHKLINE-A0508650A

PATIENT
  Age: 72 Year
  Sex: Male
  Weight: 70.5 kg

DRUGS (1)
  1. FLONASE [Suspect]
     Indication: ILL-DEFINED DISORDER
     Dosage: 1SPR AT NIGHT
     Route: 045

REACTIONS (1)
  - MIGRAINE [None]
